FAERS Safety Report 21878467 (Version 1)
Quarter: 2023Q1

REPORT INFORMATION
  Report Type: Spontaneous
  Country: CA (occurrence: CA)
  Receive Date: 20230118
  Receipt Date: 20230118
  Transmission Date: 20230417
  Serious: Yes (Other)
  Sender: FDA-Public Use
  Company Number: CA-MYLANLABS-2023M1005159

PATIENT
  Age: 21 Year
  Sex: Male
  Weight: 56 kg

DRUGS (1)
  1. EMTRICITABINE\TENOFOVIR DISOPROXIL [Suspect]
     Active Substance: EMTRICITABINE\TENOFOVIR DISOPROXIL
     Indication: Prophylaxis against HIV infection
     Dosage: 1 DOSAGE FORM, QD (1 EVERY 1 DAYS)
     Route: 065

REACTIONS (4)
  - Angioedema [Recovered/Resolved]
  - Pharyngeal swelling [Recovered/Resolved]
  - Eye pruritus [Recovered/Resolved]
  - Swelling face [Recovered/Resolved]
